FAERS Safety Report 22182373 (Version 3)
Quarter: 2023Q2

REPORT INFORMATION
  Report Type: Report from Study
  Country: CN (occurrence: CN)
  Receive Date: 20230406
  Receipt Date: 20230427
  Transmission Date: 20230721
  Serious: Yes (Death, Life-Threatening, Hospitalization)
  Sender: FDA-Public Use
  Company Number: CN-JNJFOC-20230333059

PATIENT
  Age: 59 Year
  Sex: Male
  Weight: 71 kg

DRUGS (15)
  1. TECLISTAMAB [Suspect]
     Active Substance: TECLISTAMAB
     Indication: Plasma cell myeloma
     Route: 058
     Dates: start: 20221220, end: 20221222
  2. TECLISTAMAB [Suspect]
     Active Substance: TECLISTAMAB
     Route: 058
     Dates: start: 20221227, end: 20230224
  3. DARATUMUMAB [Suspect]
     Active Substance: DARATUMUMAB
     Indication: Plasma cell myeloma
     Route: 058
     Dates: start: 20221219, end: 20230224
  4. LECITHIN [Concomitant]
     Active Substance: LECITHIN
     Indication: Prophylaxis
     Route: 048
     Dates: start: 20221201
  5. BICYCLOL [Concomitant]
     Active Substance: BICYCLOL
     Indication: Prophylaxis
     Route: 048
     Dates: start: 20221201
  6. AMLODIPINE BESYLATE [Concomitant]
     Active Substance: AMLODIPINE BESYLATE
     Indication: Prophylaxis
     Route: 048
     Dates: start: 20221209
  7. LIDOCAINE HYDROCHLORIDE [Concomitant]
     Active Substance: LIDOCAINE HYDROCHLORIDE
     Indication: Local anaesthesia
     Route: 061
     Dates: start: 20230309, end: 20230309
  8. ORYZ-ASPERGILLUS ENZYME AND PANCREATIN [Concomitant]
     Indication: Decreased appetite
     Route: 048
     Dates: start: 20230310, end: 20230322
  9. MOSAPRIDE CITRATE [Concomitant]
     Active Substance: MOSAPRIDE CITRATE
     Indication: Decreased appetite
     Route: 048
     Dates: start: 20230310, end: 20230322
  10. SIMETHICONE (DIMETHICONE) [Concomitant]
     Active Substance: DIMETHICONE
     Indication: Prophylaxis
     Route: 048
     Dates: start: 20230314, end: 20230315
  11. EUCALYPTOL, LIMONENE AND PINENE [Concomitant]
     Indication: Pneumonia
     Route: 048
     Dates: start: 20230309, end: 20230322
  12. EUCALYPTOL, LIMONENE AND PINENE [Concomitant]
     Indication: Pneumonia
  13. AMINOPHYLLINE\CHLORPHENIRAMINE MALEATE\METHOXYPHENAMINE HYDROCHLORIDE\ [Concomitant]
     Active Substance: AMINOPHYLLINE\CHLORPHENIRAMINE MALEATE\METHOXYPHENAMINE HYDROCHLORIDE\NOSCAPINE
     Indication: Pneumonia
     Route: 048
     Dates: start: 20230309, end: 20230315
  14. SODIUM BICARBONATE [Concomitant]
     Active Substance: SODIUM BICARBONATE
     Indication: Prophylaxis
     Dosage: 50
     Route: 042
     Dates: start: 20230224, end: 20230224
  15. POTASSIUM CHLORIDE [Concomitant]
     Active Substance: POTASSIUM CHLORIDE
     Indication: Mineral supplementation
     Dosage: 10%
     Route: 042
     Dates: start: 20230317, end: 20230317

REACTIONS (4)
  - Respiratory failure [Fatal]
  - Pneumonia [Not Recovered/Not Resolved]
  - Acute respiratory distress syndrome [Not Recovered/Not Resolved]
  - Chronic obstructive pulmonary disease [Not Recovered/Not Resolved]

NARRATIVE: CASE EVENT DATE: 20230313
